FAERS Safety Report 9130078 (Version 1)
Quarter: 2013Q1

REPORT INFORMATION
  Report Type: Spontaneous
  Country: US (occurrence: US)
  Receive Date: 20130228
  Receipt Date: 20130228
  Transmission Date: 20140127
  Serious: Yes (Hospitalization, Other)
  Sender: FDA-Public Use
  Company Number: US-ELI_LILLY_AND_COMPANY-US201302008083

PATIENT
  Sex: Female

DRUGS (4)
  1. EFFIENT [Suspect]
     Dosage: 10 MG, QD
     Dates: start: 201209
  2. EFFIENT [Suspect]
     Dosage: 150 MG, SINGLE
  3. ASPIRIN [Concomitant]
     Dosage: 81 MG, UNKNOWN
  4. ATORVASTATIN [Concomitant]
     Dosage: 40 MG, UNKNOWN

REACTIONS (2)
  - Intentional overdose [Unknown]
  - Gastrointestinal haemorrhage [Recovered/Resolved]
